FAERS Safety Report 6750592-2 (Version None)
Quarter: 2010Q2

REPORT INFORMATION
  Report Type: 
  Country: None (occurrence: None)
  Receive Date: 20100528
  Receipt Date: 20100528
  Transmission Date: 20101027
  Serious: Yes (Other)
  Sender: FDA-Public Use
  Company Number: None

PATIENT
  Age: 64 Year
  Sex: Male
  Weight: 90.7194 kg

DRUGS (1)
  1. ZICAM MATRIXX INITIATIVES INC. [Suspect]
     Indication: NASOPHARYNGITIS
     Dosage: 1 PUMP IN EACH NOSTRIL Q4H
     Dates: start: 20100101, end: 20100101

REACTIONS (2)
  - ANOSMIA [None]
  - NASAL DISCOMFORT [None]
